FAERS Safety Report 21705266 (Version 2)
Quarter: 2025Q2

REPORT INFORMATION
  Report Type: Spontaneous
  Country: GB (occurrence: GB)
  Receive Date: 20221209
  Receipt Date: 20250425
  Transmission Date: 20250716
  Serious: Yes (Death, Life-Threatening, Other)
  Sender: MYLAN
  Company Number: GB-MYLANLABS-2022M1137442

PATIENT
  Age: 51 Year
  Sex: Male

DRUGS (44)
  1. ALPRAZOLAM [Suspect]
     Active Substance: ALPRAZOLAM
     Indication: Product used for unknown indication
  2. ALPRAZOLAM [Suspect]
     Active Substance: ALPRAZOLAM
     Route: 065
  3. ALPRAZOLAM [Suspect]
     Active Substance: ALPRAZOLAM
     Route: 065
  4. ALPRAZOLAM [Suspect]
     Active Substance: ALPRAZOLAM
  5. TEMAZEPAM [Suspect]
     Active Substance: TEMAZEPAM
     Indication: Product used for unknown indication
  6. TEMAZEPAM [Suspect]
     Active Substance: TEMAZEPAM
     Route: 065
  7. TEMAZEPAM [Suspect]
     Active Substance: TEMAZEPAM
     Route: 065
  8. TEMAZEPAM [Suspect]
     Active Substance: TEMAZEPAM
  9. OXAZEPAM [Suspect]
     Active Substance: OXAZEPAM
     Indication: Product used for unknown indication
  10. OXAZEPAM [Suspect]
     Active Substance: OXAZEPAM
     Route: 065
  11. OXAZEPAM [Suspect]
     Active Substance: OXAZEPAM
     Route: 065
  12. OXAZEPAM [Suspect]
     Active Substance: OXAZEPAM
  13. SERTRALINE [Suspect]
     Active Substance: SERTRALINE HYDROCHLORIDE
     Indication: Product used for unknown indication
  14. SERTRALINE [Suspect]
     Active Substance: SERTRALINE HYDROCHLORIDE
     Route: 065
  15. SERTRALINE [Suspect]
     Active Substance: SERTRALINE HYDROCHLORIDE
     Route: 065
  16. SERTRALINE [Suspect]
     Active Substance: SERTRALINE HYDROCHLORIDE
  17. RISPERIDONE [Suspect]
     Active Substance: RISPERIDONE
     Indication: Product used for unknown indication
  18. RISPERIDONE [Suspect]
     Active Substance: RISPERIDONE
     Route: 065
  19. RISPERIDONE [Suspect]
     Active Substance: RISPERIDONE
     Route: 065
  20. RISPERIDONE [Suspect]
     Active Substance: RISPERIDONE
  21. CODEINE [Suspect]
     Active Substance: CODEINE
     Indication: Product used for unknown indication
  22. CODEINE [Suspect]
     Active Substance: CODEINE
     Route: 065
  23. CODEINE [Suspect]
     Active Substance: CODEINE
     Route: 065
  24. CODEINE [Suspect]
     Active Substance: CODEINE
  25. PREGABALIN [Suspect]
     Active Substance: PREGABALIN
     Indication: Product used for unknown indication
  26. PREGABALIN [Suspect]
     Active Substance: PREGABALIN
     Route: 065
  27. PREGABALIN [Suspect]
     Active Substance: PREGABALIN
     Route: 065
  28. PREGABALIN [Suspect]
     Active Substance: PREGABALIN
  29. MORPHINE [Suspect]
     Active Substance: MORPHINE
     Indication: Product used for unknown indication
  30. MORPHINE [Suspect]
     Active Substance: MORPHINE
     Route: 065
  31. MORPHINE [Suspect]
     Active Substance: MORPHINE
     Route: 065
  32. MORPHINE [Suspect]
     Active Substance: MORPHINE
  33. METHADONE [Suspect]
     Active Substance: METHADONE HYDROCHLORIDE
     Indication: Product used for unknown indication
  34. METHADONE [Suspect]
     Active Substance: METHADONE HYDROCHLORIDE
     Route: 065
  35. METHADONE [Suspect]
     Active Substance: METHADONE HYDROCHLORIDE
     Route: 065
  36. METHADONE [Suspect]
     Active Substance: METHADONE HYDROCHLORIDE
  37. DIAZEPAM [Suspect]
     Active Substance: DIAZEPAM
     Indication: Product used for unknown indication
  38. DIAZEPAM [Suspect]
     Active Substance: DIAZEPAM
     Route: 065
  39. DIAZEPAM [Suspect]
     Active Substance: DIAZEPAM
     Route: 065
  40. DIAZEPAM [Suspect]
     Active Substance: DIAZEPAM
  41. NORDAZEPAM [Suspect]
     Active Substance: NORDAZEPAM
     Indication: Product used for unknown indication
  42. NORDAZEPAM [Suspect]
     Active Substance: NORDAZEPAM
     Route: 065
  43. NORDAZEPAM [Suspect]
     Active Substance: NORDAZEPAM
     Route: 065
  44. NORDAZEPAM [Suspect]
     Active Substance: NORDAZEPAM

REACTIONS (3)
  - Toxicity to various agents [Fatal]
  - Drug abuse [Fatal]
  - Depressed level of consciousness [Fatal]
